FAERS Safety Report 6027433-4 (Version None)
Quarter: 2009Q1

REPORT INFORMATION
  Report Type: 
  Country: None (occurrence: None)
  Receive Date: 20090105
  Receipt Date: 20081222
  Transmission Date: 20090719
  Serious: Yes (Death, Hospitalization)
  Sender: FDA-Public Use
  Company Number: TW-MERCK-0812USA04588

PATIENT
  Age: 65 Year
  Sex: Female

DRUGS (1)
  1. HYDROCORTISONE [Suspect]
     Indication: POLYMYOSITIS
     Route: 048

REACTIONS (7)
  - ACTIVATED PARTIAL THROMBOPLASTIN TIME PROLONGED [None]
  - HYPOVOLAEMIC SHOCK [None]
  - MEDIASTINUM NEOPLASM [None]
  - PLATELET COUNT INCREASED [None]
  - RETROPERITONEAL HAEMORRHAGE [None]
  - SEPSIS [None]
  - THYMOMA [None]
